FAERS Safety Report 18341291 (Version 4)
Quarter: 2021Q4

REPORT INFORMATION
  Report Type: Spontaneous
  Country: DE (occurrence: DE)
  Receive Date: 20201003
  Receipt Date: 20211217
  Transmission Date: 20220303
  Serious: Yes (Other)
  Sender: FDA-Public Use
  Company Number: DE-KOREA IPSEN PHARMA-2020-18238

PATIENT
  Age: 65 Year
  Sex: Female

DRUGS (6)
  1. DYSPORT [Suspect]
     Active Substance: ABOBOTULINUMTOXINA
     Indication: Skin wrinkling
     Dosage: 0.7ML/4ML (POSSIBLY ADMINISTERED AMOUNT/TOTAL VOLUME THAT WAS USED FOR DILUTION,BUT WAS SPECULATIVE)
     Route: 065
     Dates: start: 20180824, end: 20180824
  2. DYSPORT [Suspect]
     Active Substance: ABOBOTULINUMTOXINA
     Indication: Skin wrinkling
  3. DYSPORT [Suspect]
     Active Substance: ABOBOTULINUMTOXINA
     Indication: Skin wrinkling
  4. DYSPORT [Suspect]
     Active Substance: ABOBOTULINUMTOXINA
     Indication: Skin wrinkling
  5. DYSPORT [Suspect]
     Active Substance: ABOBOTULINUMTOXINA
     Indication: Off label use
  6. LEVOTHYROXINE [Concomitant]
     Active Substance: LEVOTHYROXINE
     Indication: Autoimmune thyroiditis

REACTIONS (47)
  - Intracranial aneurysm [Unknown]
  - Pancreatic failure [Unknown]
  - Cardiac failure [Unknown]
  - Suicidal ideation [Unknown]
  - Arrhythmia [Unknown]
  - Defect conduction intraventricular [Unknown]
  - Cardiac failure [Unknown]
  - Dysphagia [Unknown]
  - Adverse event [Unknown]
  - Illness [Unknown]
  - Cardiac pacemaker insertion [Unknown]
  - General physical health deterioration [Unknown]
  - Head discomfort [Unknown]
  - Malaise [Unknown]
  - Injection site discomfort [Unknown]
  - Vomiting [Unknown]
  - Nausea [Unknown]
  - Weight decreased [Unknown]
  - Hypertension [Unknown]
  - Dyspnoea [Unknown]
  - Extrasystoles [Unknown]
  - Blood pressure fluctuation [Unknown]
  - Cardiac disorder [Unknown]
  - Emphysema [Unknown]
  - Depression [Unknown]
  - Anxiety disorder [Unknown]
  - Sleep disorder [Unknown]
  - Muscular weakness [Unknown]
  - Rash [Unknown]
  - Headache [Unknown]
  - Hypoaesthesia oral [Unknown]
  - Mental disorder [Unknown]
  - Dizziness [Unknown]
  - Vision blurred [Unknown]
  - Abdominal pain [Unknown]
  - Hyperhidrosis [Unknown]
  - Dermatitis [Unknown]
  - Limb discomfort [Unknown]
  - Hypoaesthesia [Unknown]
  - Secretion discharge [Unknown]
  - Tremor [Unknown]
  - Cognitive disorder [Unknown]
  - Skin irritation [Unknown]
  - Head discomfort [Unknown]
  - Pancreatic disorder [Unknown]
  - Off label use [Unknown]
  - Off label use [Unknown]

NARRATIVE: CASE EVENT DATE: 20180824
